FAERS Safety Report 10332866 (Version 1)
Quarter: 2014Q3

REPORT INFORMATION
  Report Type: Report from Study
  Country: US (occurrence: US)
  Receive Date: 20140722
  Receipt Date: 20140722
  Transmission Date: 20150326
  Serious: Yes (Hospitalization, Other)
  Sender: FDA-Public Use
  Company Number: PHEH2014US014437

PATIENT
  Sex: Female
  Weight: 68.27 kg

DRUGS (14)
  1. VITAMIN B12 [Concomitant]
     Active Substance: CYANOCOBALAMIN
  2. SENOKOT [Concomitant]
     Active Substance: SENNOSIDES
  3. MOBIC [Concomitant]
     Active Substance: MELOXICAM
  4. FOLVITE [Concomitant]
     Active Substance: FOLIC ACID
  5. KEPPRA [Concomitant]
     Active Substance: LEVETIRACETAM
  6. THERAGRAN [Concomitant]
     Active Substance: VITAMINS
  7. HERBAL NOS [Concomitant]
     Active Substance: HERBALS
  8. VITAMIN E [Concomitant]
     Active Substance: .ALPHA.-TOCOPHEROL
  9. GILENYA [Suspect]
     Active Substance: FINGOLIMOD HYDROCHLORIDE
     Indication: MULTIPLE SCLEROSIS
     Dosage: 0.5 MG, QD
     Route: 048
     Dates: start: 20101228
  10. VITAMIN D [Concomitant]
     Active Substance: CHOLECALCIFEROL
  11. FERROUS SULFATE [Concomitant]
     Active Substance: FERROUS SULFATE\FERROUS SULFATE, DRIED
  12. LIORESAL [Concomitant]
     Active Substance: BACLOFEN
  13. OMEGA 3 FISH OIL                   /06852001/ [Concomitant]
  14. SILYBUM MARIANUM [Concomitant]

REACTIONS (17)
  - Aphasia [Not Recovered/Not Resolved]
  - Vitamin D deficiency [Not Recovered/Not Resolved]
  - Polymenorrhoea [Not Recovered/Not Resolved]
  - Balance disorder [Not Recovered/Not Resolved]
  - Depression [Not Recovered/Not Resolved]
  - Visual acuity reduced [Not Recovered/Not Resolved]
  - Convulsion [Not Recovered/Not Resolved]
  - Fall [Not Recovered/Not Resolved]
  - Ataxia [Not Recovered/Not Resolved]
  - Asthenia [Not Recovered/Not Resolved]
  - Gait disturbance [Not Recovered/Not Resolved]
  - Muscle spasms [Not Recovered/Not Resolved]
  - Nystagmus [Not Recovered/Not Resolved]
  - Urinary tract infection [Not Recovered/Not Resolved]
  - Pain in extremity [Not Recovered/Not Resolved]
  - Abasia [Not Recovered/Not Resolved]
  - Menstruation irregular [Not Recovered/Not Resolved]
